FAERS Safety Report 5014182-4 (Version None)
Quarter: 2006Q2

REPORT INFORMATION
  Report Type: 
  Country: None (occurrence: None)
  Receive Date: 20060414
  Receipt Date: 20051216
  Transmission Date: 20061013
  Serious: No
  Sender: FDA-Public Use
  Company Number: 2005SP004443

PATIENT
  Age: 27 Year
  Sex: Female
  Weight: 104.7809 kg

DRUGS (5)
  1. LUNESTA [Suspect]
     Indication: INSOMNIA
     Dosage: HS;ORAL
     Route: 048
     Dates: start: 20051215, end: 20051201
  2. ALPRAZOLAM [Concomitant]
  3. VITAMIN B-12 [Concomitant]
  4. CELEXA [Concomitant]
  5. TOPROL-XL [Concomitant]

REACTIONS (1)
  - DYSGEUSIA [None]
